FAERS Safety Report 4423621-9 (Version None)
Quarter: 2004Q3

REPORT INFORMATION
  Report Type: 
  Country: None (occurrence: None)
  Receive Date: 20040805
  Receipt Date: 20040726
  Transmission Date: 20050211
  Serious: Yes (Hospitalization, Other)
  Sender: FDA-Public Use
  Company Number: DE-JNJFOC-20040707024

PATIENT
  Age: 77 Year
  Sex: Male

DRUGS (29)
  1. LEVOFLOXACIN [Suspect]
     Indication: PNEUMONIA
     Dosage: INTRAVENOUS
     Route: 042
     Dates: start: 20040106, end: 20040113
  2. LEVOFLOXACIN [Suspect]
     Indication: PNEUMONIA
     Dosage: ORAL
     Route: 048
     Dates: start: 20040114, end: 20040116
  3. SOLUMEDROL (METHYLPRENDISOLONE SODIUM SUCCIANTE) [Concomitant]
  4. POTASSIUM CHLORIDE [Concomitant]
  5. TRUSOPT [Concomitant]
  6. SINGULAR (MONTELUKAST SODIUM) [Concomitant]
  7. CARDIZEM [Concomitant]
  8. THEO-DUR [Concomitant]
  9. LASIX [Concomitant]
  10. XOPENEX [Concomitant]
  11. ATROVENT [Concomitant]
  12. GUAIFENEX (ENTEX) [Concomitant]
  13. LISINOPRIL [Concomitant]
  14. DIGOXIN [Concomitant]
  15. FLOMAX [Concomitant]
  16. UNIPHYL [Concomitant]
  17. DURAGESIC [Concomitant]
  18. METAMUCIL (PSYLLIUM HYDROPHILIC MUCILLID) [Concomitant]
  19. ADVAIR (SERETIDE MITE) [Concomitant]
  20. PREDNISONE [Concomitant]
  21. ACETYLSALICYLIC ACID SRT [Concomitant]
  22. CARDIZEM [Concomitant]
  23. XANAX [Concomitant]
  24. GOLYTELY (GOLYTELY) [Concomitant]
  25. ACETAMINOPHEN [Concomitant]
  26. DILAUDID [Concomitant]
  27. PROTONIX [Concomitant]
  28. ALBUTEROL [Concomitant]
  29. AMBIEN [Concomitant]

REACTIONS (7)
  - COLITIS ISCHAEMIC [None]
  - CORONARY ARTERY ATHEROSCLEROSIS [None]
  - HAEMORRHOIDS [None]
  - LOWER GASTROINTESTINAL HAEMORRHAGE [None]
  - MESENTERIC VASCULAR INSUFFICIENCY [None]
  - RENAL CYST [None]
  - SCAN ABDOMEN ABNORMAL [None]
